FAERS Safety Report 17755137 (Version 6)
Quarter: 2021Q2

REPORT INFORMATION
  Report Type: Spontaneous
  Country: US (occurrence: US)
  Receive Date: 20200507
  Receipt Date: 20210624
  Transmission Date: 20210716
  Serious: Yes (Hospitalization, Other)
  Sender: FDA-Public Use
  Company Number: US-GILEAD-2020-0464469

PATIENT
  Age: 39 Year
  Sex: Male
  Weight: 99.77 kg

DRUGS (77)
  1. AMOXICILLIN. [Concomitant]
     Active Substance: AMOXICILLIN
  2. BENZONATATE. [Concomitant]
     Active Substance: BENZONATATE
  3. ONDANSETRON [Concomitant]
     Active Substance: ONDANSETRON
  4. FLOMAX [MORNIFLUMATE] [Concomitant]
     Active Substance: MORNIFLUMATE
     Dosage: UNK
     Route: 065
     Dates: start: 201704, end: 201710
  5. ANDROGEL [Concomitant]
     Active Substance: TESTOSTERONE
  6. DICYCLOVERINE [Concomitant]
     Active Substance: DICYCLOMINE HYDROCHLORIDE
  7. MORPHINE [Concomitant]
     Active Substance: MORPHINE
  8. NAPROXEN. [Concomitant]
     Active Substance: NAPROXEN
  9. NARCAN [Concomitant]
     Active Substance: NALOXONE HYDROCHLORIDE
  10. HEPARIN [Concomitant]
     Active Substance: HEPARIN SODIUM
     Dosage: UNK
     Route: 065
     Dates: start: 2016, end: 2019
  11. PREDNISONE. [Concomitant]
     Active Substance: PREDNISONE
     Dosage: UNK
     Route: 065
     Dates: start: 20160130, end: 201802
  12. EPIVIR [Concomitant]
     Active Substance: LAMIVUDINE
     Dosage: UNK
     Dates: start: 20140624, end: 201410
  13. NORVIR [Concomitant]
     Active Substance: RITONAVIR
     Dosage: UNK
     Route: 065
     Dates: start: 201505, end: 201601
  14. PREZISTA [Concomitant]
     Active Substance: DARUNAVIR ETHANOLATE
     Dosage: UNK
     Route: 065
     Dates: start: 201601, end: 201608
  15. CEPHALEXIN [CEFALEXIN] [Concomitant]
     Active Substance: CEPHALEXIN
  16. DOXYCYCLINE. [Concomitant]
     Active Substance: DOXYCYCLINE
  17. LAMIVUDINE. [Concomitant]
     Active Substance: LAMIVUDINE
  18. MS CONTIN [Concomitant]
     Active Substance: MORPHINE SULFATE
  19. ATRIPLA [Suspect]
     Active Substance: EFAVIRENZ\EMTRICITABINE\TENOFOVIR DISOPROXIL FUMARATE
     Indication: HIV INFECTION
     Dosage: UNK
     Route: 048
     Dates: start: 20080703, end: 20140624
  20. BACTRIM [Concomitant]
     Active Substance: SULFAMETHOXAZOLE\TRIMETHOPRIM
     Dosage: UNK
     Route: 065
     Dates: start: 1994, end: 1999
  21. CIMETIDINE [Concomitant]
     Active Substance: CIMETIDINE
  22. FLOMAX [MORNIFLUMATE] [Concomitant]
     Active Substance: MORNIFLUMATE
     Dosage: UNK
     Route: 065
     Dates: start: 201711, end: 201809
  23. INDINAVIR [Concomitant]
     Active Substance: INDINAVIR
     Dosage: UNK
     Route: 065
     Dates: start: 1996, end: 1998
  24. INTELENCE [Concomitant]
     Active Substance: ETRAVIRINE
     Dosage: UNK
     Route: 065
     Dates: start: 201601
  25. NORVIR [Concomitant]
     Active Substance: RITONAVIR
     Dosage: UNK
     Route: 065
     Dates: start: 20160105, end: 201608
  26. PREZISTA [Concomitant]
     Active Substance: DARUNAVIR ETHANOLATE
     Dosage: UNK
     Route: 065
     Dates: start: 201505, end: 201601
  27. VIDEX [Concomitant]
     Active Substance: DIDANOSINE
     Indication: HIV INFECTION
     Dosage: UNK
     Route: 065
     Dates: start: 1991, end: 1991
  28. BUSPIRONE [Concomitant]
     Active Substance: BUSPIRONE HYDROCHLORIDE
  29. CIPROFLOXACIN. [Concomitant]
     Active Substance: CIPROFLOXACIN
  30. DILAUDID [Concomitant]
     Active Substance: HYDROMORPHONE HYDROCHLORIDE
  31. IMIQUIMOD. [Concomitant]
     Active Substance: IMIQUIMOD
  32. ATORVASTATIN [Concomitant]
     Active Substance: ATORVASTATIN
     Dosage: UNK
     Route: 065
     Dates: start: 2016
  33. CORTISONE [Concomitant]
     Active Substance: CORTISONE
  34. FLOMAX [MORNIFLUMATE] [Concomitant]
     Active Substance: MORNIFLUMATE
     Dosage: UNK
     Route: 065
     Dates: start: 201811
  35. OMEPRAZOLE. [Concomitant]
     Active Substance: OMEPRAZOLE
     Dosage: UNK
     Route: 065
     Dates: start: 1998
  36. PREDNISONE. [Concomitant]
     Active Substance: PREDNISONE
     Dosage: UNK
     Route: 065
     Dates: start: 20190207, end: 20190211
  37. PREDNISONE. [Concomitant]
     Active Substance: PREDNISONE
     Dosage: UNK
     Route: 065
     Dates: start: 20190213, end: 20190305
  38. TRIAMCINOLONE [Concomitant]
     Active Substance: TRIAMCINOLONE
  39. INVIRASE [Concomitant]
     Active Substance: SAQUINAVIR MESYLATE
     Indication: HIV INFECTION
     Dosage: UNK
     Route: 065
     Dates: start: 1996, end: 1998
  40. ZERIT [Concomitant]
     Active Substance: STAVUDINE
     Indication: HIV INFECTION
     Dosage: UNK
     Route: 065
     Dates: start: 1992, end: 1994
  41. DICYCLOMINE [Concomitant]
     Active Substance: DICYCLOMINE HYDROCHLORIDE
  42. DESMOPRESSIN [Concomitant]
     Active Substance: DESMOPRESSIN
  43. TRUVADA [Suspect]
     Active Substance: EMTRICITABINE\TENOFOVIR DISOPROXIL FUMARATE
     Indication: HIV INFECTION
     Dosage: UNK
     Route: 048
     Dates: start: 200511, end: 20080703
  44. ACYCLOVIR [ACICLOVIR] [Concomitant]
     Active Substance: ACYCLOVIR
     Dosage: UNK
     Route: 065
     Dates: start: 201204
  45. DEPAKOTE [Concomitant]
     Active Substance: DIVALPROEX SODIUM
     Dosage: UNK
     Route: 065
     Dates: start: 201204, end: 201208
  46. DEPAKOTE [Concomitant]
     Active Substance: DIVALPROEX SODIUM
     Dosage: UNK
     Route: 065
     Dates: start: 20180427, end: 201812
  47. DEPAKOTE [Concomitant]
     Active Substance: DIVALPROEX SODIUM
     Dosage: UNK
     Route: 065
     Dates: start: 201812
  48. FAMOTIDINE. [Concomitant]
     Active Substance: FAMOTIDINE
  49. LANSOPRAZOLE. [Concomitant]
     Active Substance: LANSOPRAZOLE
  50. CRIXIVAN [Concomitant]
     Active Substance: INDINAVIR SULFATE
     Indication: HIV INFECTION
     Dosage: UNK
     Route: 065
     Dates: start: 1996, end: 1998
  51. INTELENCE [Concomitant]
     Active Substance: ETRAVIRINE
     Dosage: UNK
     Route: 065
     Dates: start: 20140624, end: 201505
  52. INTELENCE [Concomitant]
     Active Substance: ETRAVIRINE
     Dosage: UNK
     Route: 065
     Dates: start: 201505, end: 201512
  53. PREZCOBIX [Concomitant]
     Active Substance: COBICISTAT\DARUNAVIR ETHANOLATE
     Indication: HIV INFECTION
     Dosage: UNK
     Route: 065
     Dates: start: 201608
  54. ZIAGEN [Concomitant]
     Active Substance: ABACAVIR SULFATE
     Dosage: UNK
     Route: 065
     Dates: start: 1988, end: 1991
  55. AZITHROMYCIN ANHYDROUS. [Concomitant]
     Active Substance: AZITHROMYCIN ANHYDROUS
  56. LAMOTRIGINE. [Concomitant]
     Active Substance: LAMOTRIGINE
  57. ASPIRIN [ACETYLSALICYLIC ACID] [Concomitant]
     Active Substance: ASPIRIN
     Dosage: UNK
     Route: 065
     Dates: start: 20190207
  58. DEPAKOTE [Concomitant]
     Active Substance: DIVALPROEX SODIUM
     Dosage: UNK
     Route: 065
     Dates: start: 201208, end: 2018
  59. PREDNISONE. [Concomitant]
     Active Substance: PREDNISONE
     Dosage: UNK
     Route: 065
     Dates: start: 20190729, end: 20190802
  60. VANCOMYCIN [Concomitant]
     Active Substance: VANCOMYCIN
     Dosage: UNK
     Route: 065
     Dates: start: 20160301, end: 201604
  61. NORVIR [Concomitant]
     Active Substance: RITONAVIR
     Indication: HIV INFECTION
     Dosage: UNK
     Route: 065
     Dates: start: 20140624, end: 201505
  62. ALBUTEROL [SALBUTAMOL] [Concomitant]
     Active Substance: ALBUTEROL
  63. CLOTRIMAZOLE. [Concomitant]
     Active Substance: CLOTRIMAZOLE
  64. METRONIDAZOLE. [Concomitant]
     Active Substance: METRONIDAZOLE
  65. TRUVADA [Suspect]
     Active Substance: EMTRICITABINE\TENOFOVIR DISOPROXIL FUMARATE
     Indication: HEPATITIS B
     Dosage: UNK
     Route: 048
     Dates: start: 200807, end: 201406
  66. ATRIPLA [Suspect]
     Active Substance: EFAVIRENZ\EMTRICITABINE\TENOFOVIR DISOPROXIL FUMARATE
     Indication: HEPATITIS B
  67. AMITRIPTYLINE [Concomitant]
     Active Substance: AMITRIPTYLINE
     Dosage: UNK
     Route: 065
     Dates: start: 1996, end: 1996
  68. ESOMEPRAZOLE. [Concomitant]
     Active Substance: ESOMEPRAZOLE MAGNESIUM
  69. PREDNISONE. [Concomitant]
     Active Substance: PREDNISONE
     Dosage: UNK
     Route: 065
     Dates: start: 20190404, end: 20190408
  70. PREZISTA [Concomitant]
     Active Substance: DARUNAVIR ETHANOLATE
     Indication: HIV INFECTION
     Dosage: UNK
     Route: 065
     Dates: start: 20150624
  71. RETROVIR [Concomitant]
     Active Substance: ZIDOVUDINE
     Indication: HIV INFECTION
     Dosage: UNK
     Route: 065
     Dates: start: 1988, end: 1991
  72. BANOPHEN [Concomitant]
     Active Substance: DIPHENHYDRAMINE HYDROCHLORIDE
  73. GABAPENTIN. [Concomitant]
     Active Substance: GABAPENTIN
  74. KADIAN [Concomitant]
     Active Substance: MORPHINE SULFATE
  75. ZOLPIDEM [Concomitant]
     Active Substance: ZOLPIDEM TARTRATE
  76. ACETAMINOPHEN. [Concomitant]
     Active Substance: ACETAMINOPHEN
     Dosage: UNK
     Route: 065
     Dates: start: 201205
  77. LITHIUM. [Concomitant]
     Active Substance: LITHIUM

REACTIONS (12)
  - Hand fracture [Recovered/Resolved]
  - Renal failure [Unknown]
  - Bone density decreased [Unknown]
  - Rib fracture [Recovered/Resolved]
  - Renal impairment [Not Recovered/Not Resolved]
  - Off label use [Recovered/Resolved]
  - Multiple fractures [Unknown]
  - Hand fracture [Not Recovered/Not Resolved]
  - Osteopenia [Not Recovered/Not Resolved]
  - Foot fracture [Recovered/Resolved]
  - Rib fracture [Not Recovered/Not Resolved]
  - Musculoskeletal chest pain [Unknown]

NARRATIVE: CASE EVENT DATE: 20080604
